FAERS Safety Report 4964197-7 (Version None)
Quarter: 2006Q1

REPORT INFORMATION
  Report Type: 
  Country: None (occurrence: None)
  Receive Date: 20060331
  Receipt Date: 20060322
  Transmission Date: 20060701
  Serious: Yes (Hospitalization)
  Sender: FDA-Public Use
  Company Number: 06H-163-0306825-00

PATIENT
  Age: 15 Year
  Sex: Female
  Weight: 87 kg

DRUGS (15)
  1. ATRACURIUM BESYLATE [Suspect]
     Indication: NEUROMUSCULAR BLOCKING THERAPY
  2. PROPOFOL [Suspect]
     Indication: SEDATIVE THERAPY
  3. VECURONIUM BROMIDE [Suspect]
     Indication: NEUROMUSCULAR BLOCKING THERAPY
  4. CISATRACURIUM (CISATRACURIUM) [Suspect]
     Indication: NEUROMUSCULAR BLOCKING THERAPY
  5. SOLU-MEDROL [Suspect]
     Indication: LUNG INJURY
     Dosage: 100 MG
  6. ANTIBIOTICS (ANTIBIOTICS) [Concomitant]
  7. AMINOGLYCOSIDE (AMINOGLYCOSIDE ANTIBACTERIALS) [Concomitant]
  8. LOOP DIURETICS (DIURETICS) [Concomitant]
  9. RANITIDINE [Concomitant]
  10. FENTANYL [Concomitant]
  11. DOPAMINE HCL [Concomitant]
  12. PHYTONADIONE [Concomitant]
  13. BLOOD PRODUCTS (BLOOD AND RELATED PRODUCTS) [Concomitant]
  14. INTRAVENOUS FLUIDS [Concomitant]
  15. PARENTERAL NUTRITION (SOLUTIONS FOR PARENTERAL NUTRITION) [Concomitant]

REACTIONS (4)
  - ASTHENIA [None]
  - BLOOD CREATINE PHOSPHOKINASE INCREASED [None]
  - MUSCLE NECROSIS [None]
  - MYOPATHY [None]
